FAERS Safety Report 7274988-8 (Version None)
Quarter: 2011Q1

REPORT INFORMATION
  Report Type: 
  Country: None (occurrence: None)
  Receive Date: 20110204
  Receipt Date: 20110127
  Transmission Date: 20110831
  Serious: Yes (Other)
  Sender: FDA-Public Use
  Company Number: US-ROCHE-735855

PATIENT
  Sex: Female
  Weight: 48.5 kg

DRUGS (2)
  1. E-MYCIN [Concomitant]
  2. ACCUTANE [Suspect]
     Route: 065
     Dates: start: 19821109, end: 19830413

REACTIONS (8)
  - COLITIS ULCERATIVE [None]
  - CHEST PAIN [None]
  - DRY SKIN [None]
  - DRY EYE [None]
  - INJURY [None]
  - CROHN'S DISEASE [None]
  - DEPRESSION [None]
  - CHEILITIS [None]
